FAERS Safety Report 20549586 (Version 2)
Quarter: 2023Q1

REPORT INFORMATION
  Report Type: Report from Study
  Country: US (occurrence: US)
  Receive Date: 20220303
  Receipt Date: 20230127
  Transmission Date: 20230417
  Serious: Yes (Death, Other)
  Sender: FDA-Public Use
  Company Number: US-ACADIA PHARMACEUTICALS INC.-ACA-2022-PIM-000470

PATIENT
  Age: 69 Year
  Sex: Male

DRUGS (17)
  1. NUPLAZID [Suspect]
     Active Substance: PIMAVANSERIN TARTRATE
     Indication: Parkinson^s disease
     Dosage: 10 MILLIGRAM, BID
     Route: 048
     Dates: start: 202203
  2. NUPLAZID [Suspect]
     Active Substance: PIMAVANSERIN TARTRATE
     Indication: Parkinson^s disease psychosis
     Dosage: 34 MILLIGRAM, QD
     Route: 048
  3. NUPLAZID [Suspect]
     Active Substance: PIMAVANSERIN TARTRATE
     Indication: Delusion
     Dosage: 34 MILLIGRAM, QD
     Route: 048
     Dates: start: 20220131, end: 2022
  4. NUPLAZID [Suspect]
     Active Substance: PIMAVANSERIN TARTRATE
     Indication: Hallucination
     Dosage: TAKE HALF OF 34 MG CAP WHICH IS 17 MG QD (OPENING CAPSULE, USING HALF OF CONTENTS)
     Route: 048
     Dates: start: 20220201
  5. MELATONIN [Concomitant]
     Active Substance: MELATONIN
  6. FINASTERIDE [Concomitant]
     Active Substance: FINASTERIDE
  7. DOXYCYCLINE [Concomitant]
     Active Substance: DOXYCYCLINE
  8. PANTOPRAZOLE [Concomitant]
     Active Substance: PANTOPRAZOLE
  9. ASPIRIN [Concomitant]
     Active Substance: ASPIRIN
  10. PRAVASTATIN [Concomitant]
     Active Substance: PRAVASTATIN
  11. GLIPIZIDE [Concomitant]
     Active Substance: GLIPIZIDE
  12. METFORMIN [Concomitant]
     Active Substance: METFORMIN HYDROCHLORIDE
  13. CITALOPRAM [Concomitant]
     Active Substance: CITALOPRAM HYDROBROMIDE
  14. AMANTADINE [Concomitant]
     Active Substance: AMANTADINE
  15. LAMOTRIGINE [Concomitant]
     Active Substance: LAMOTRIGINE
  16. MEMANTINE [Concomitant]
     Active Substance: MEMANTINE
  17. CARBIDOPA\LEVODOPA [Concomitant]
     Active Substance: CARBIDOPA\LEVODOPA

REACTIONS (8)
  - Death [Recovered/Resolved]
  - Inappropriate schedule of product administration [Recovered/Resolved]
  - Drooling [Recovered/Resolved]
  - Speech disorder [Recovered/Resolved]
  - Wrong technique in product usage process [Not Recovered/Not Resolved]
  - Prescribed underdose [Not Recovered/Not Resolved]
  - Gait disturbance [Recovered/Resolved]
  - Somnolence [Recovered/Resolved]

NARRATIVE: CASE EVENT DATE: 20220125
